FAERS Safety Report 6057489-4 (Version None)
Quarter: 2009Q1

REPORT INFORMATION
  Report Type: 
  Country: None (occurrence: None)
  Receive Date: 20090129
  Receipt Date: 20090121
  Transmission Date: 20090719
  Serious: Yes (Other)
  Sender: FDA-Public Use
  Company Number: JP-ALLERGAN-0901032US

PATIENT
  Sex: Male

DRUGS (7)
  1. ALESION TABLET [Suspect]
     Indication: PRURIGO
     Dosage: 20 MG, QD
     Route: 048
  2. OXATOMIDE [Suspect]
     Indication: PRURIGO
     Dosage: 120 MG, UNKNOWN
     Route: 048
  3. AMLODIPINE [Concomitant]
     Indication: HYPERTENSION
     Dosage: 5 MG, UNK
     Route: 048
  4. CANDESARTAN [Concomitant]
     Indication: HYPERTENSION
     Dosage: 8 MG, UNK
     Route: 048
  5. AROTINOLOL [Concomitant]
     Indication: HYPERTENSION
     Dosage: 20 MG, UNK
     Route: 048
  6. FUROSEMIDE [Concomitant]
     Indication: HYPERTENSION
     Dosage: 20 MG, UNK
     Route: 048
  7. ALLOPURINOL [Concomitant]
     Indication: HYPERURICAEMIA
     Dosage: 200 MG, UNK
     Route: 048

REACTIONS (1)
  - MYOCLONUS [None]
